FAERS Safety Report 20305504 (Version 2)
Quarter: 2022Q1

REPORT INFORMATION
  Report Type: Spontaneous
  Country: US (occurrence: US)
  Receive Date: 20220106
  Receipt Date: 20220317
  Transmission Date: 20220423
  Serious: No
  Sender: FDA-Public Use
  Company Number: US-PFIZER INC-202101814926

PATIENT
  Age: 18 Year
  Sex: Female
  Weight: 54.88 kg

DRUGS (1)
  1. DEPO-PROVERA [Suspect]
     Active Substance: MEDROXYPROGESTERONE ACETATE
     Indication: Contraception
     Dosage: 150MG/ML
     Route: 030
     Dates: start: 20211216

REACTIONS (2)
  - Incorrect dose administered by device [Unknown]
  - Device occlusion [Unknown]

NARRATIVE: CASE EVENT DATE: 20211216
